FAERS Safety Report 25877029 (Version 1)
Quarter: 2025Q4

REPORT INFORMATION
  Report Type: Spontaneous
  Country: EU (occurrence: EU)
  Receive Date: 20251003
  Receipt Date: 20251003
  Transmission Date: 20260118
  Serious: Yes (Other)
  Sender: AUROBINDO
  Company Number: EU-AFSSAPS-RN2025000871

PATIENT
  Age: 70 Year
  Sex: Male
  Weight: 67 kg

DRUGS (5)
  1. METRONIDAZOLE [Suspect]
     Active Substance: METRONIDAZOLE
     Indication: Infection
     Dosage: 3 DOSAGE FORM, ONCE A DAY (1 COMPRIM? MATIN MIDI ET SOIR)
     Route: 048
     Dates: start: 20250730, end: 20250903
  2. LEVOFLOXACIN [Suspect]
     Active Substance: LEVOFLOXACIN
     Indication: Infection
     Dosage: 1 DOSAGE FORM, ONCE A DAY (1/J)
     Route: 048
     Dates: start: 20250807, end: 20250903
  3. PIPERACILLIN SODIUM\TAZOBACTAM SODIUM [Concomitant]
     Active Substance: PIPERACILLIN SODIUM\TAZOBACTAM SODIUM
     Indication: Infection
     Dosage: UNK
     Route: 042
     Dates: start: 20250731, end: 20250801
  4. TEMOCILLIN [Concomitant]
     Active Substance: TEMOCILLIN
     Indication: Infection
     Dosage: UNK
     Route: 065
     Dates: start: 20250801, end: 20250807
  5. DAPTOMYCIN [Concomitant]
     Active Substance: DAPTOMYCIN
     Indication: Infection
     Dosage: UNK
     Route: 042
     Dates: start: 20250801, end: 20250807

REACTIONS (2)
  - Thrombocytopenia [Not Recovered/Not Resolved]
  - Hepatic cytolysis [Not Recovered/Not Resolved]

NARRATIVE: CASE EVENT DATE: 20250818
